FAERS Safety Report 14294424 (Version 1)
Quarter: 2017Q4

REPORT INFORMATION
  Report Type: Spontaneous
  Country: US (occurrence: US)
  Receive Date: 20171218
  Receipt Date: 20171218
  Transmission Date: 20180321
  Serious: Yes (Hospitalization, Other)
  Sender: FDA-Public Use
  Company Number: US-ZYDUS-018342

PATIENT
  Age: 76 Year
  Sex: Male

DRUGS (3)
  1. METHOTREXATE. [Suspect]
     Active Substance: METHOTREXATE
     Indication: ECZEMA
     Route: 065
  2. HYDROCHLOROTHIAZIDE. [Suspect]
     Active Substance: HYDROCHLOROTHIAZIDE
     Indication: HYPERTENSION
     Route: 065
  3. CALCIUM CARBONATE. [Suspect]
     Active Substance: CALCIUM CARBONATE
     Indication: GASTROOESOPHAGEAL REFLUX DISEASE
     Route: 065

REACTIONS (10)
  - Gastrooesophageal reflux disease [Recovered/Resolved]
  - Dyspnoea exertional [Recovered/Resolved]
  - Granulomatous pneumonitis [Recovered/Resolved]
  - Hypoxia [Recovered/Resolved]
  - Rhonchi [Recovered/Resolved]
  - Cough [Recovered/Resolved]
  - Hypercalcaemia [Recovered/Resolved]
  - Vitamin D increased [Recovered/Resolved]
  - Lung infiltration [Recovered/Resolved]
  - Blood parathyroid hormone decreased [Recovered/Resolved]
